FAERS Safety Report 9687598 (Version 2)
Quarter: 2013Q4

REPORT INFORMATION
  Report Type: Spontaneous
  Country: BR (occurrence: BR)
  Receive Date: 20131114
  Receipt Date: 20131122
  Transmission Date: 20140711
  Serious: Yes (Death, Hospitalization)
  Sender: FDA-Public Use
  Company Number: BR-RANBAXY-2013R5-75187

PATIENT
  Age: 17 Year
  Sex: Male

DRUGS (5)
  1. CEFUROXIME AXETIL [Suspect]
     Indication: URINARY TRACT INFECTION
     Dosage: 500 MG, BID
     Route: 048
     Dates: start: 201209, end: 201209
  2. TAZOCIN [Suspect]
     Indication: PRODUCT USED FOR UNKNOWN INDICATION
     Dosage: UNK
     Route: 065
  3. CARBAMAZEPINE [Concomitant]
     Indication: EPILEPSY
     Dosage: 20 ML, TID
     Route: 065
  4. DEPAKENE [Concomitant]
     Indication: CONVULSION
     Dosage: 2.5 ML, TID
     Route: 065
  5. RIVOTRIL [Concomitant]
     Indication: CONVULSION
     Dosage: 10 GTT, BID
     Route: 065

REACTIONS (10)
  - Pyrexia [Recovering/Resolving]
  - Diarrhoea haemorrhagic [Recovering/Resolving]
  - Vomiting [Recovering/Resolving]
  - Urticaria [Recovering/Resolving]
  - Swelling [Recovering/Resolving]
  - Medication error [Recovered/Resolved]
  - Multi-organ failure [Fatal]
  - Septic shock [Fatal]
  - Bronchopneumonia [Fatal]
  - Cerebral palsy [Fatal]
